FAERS Safety Report 9012272 (Version 1)
Quarter: 2012Q4

REPORT INFORMATION
  Report Type: Spontaneous
  Country: US (occurrence: None)
  Receive Date: 20121231
  Receipt Date: 20121231
  Transmission Date: 20130627
  Serious: Yes (Hospitalization)
  Sender: FDA-Public Use
  Company Number: 2012AP004362

PATIENT
  Age: 75 Year
  Sex: Female

DRUGS (4)
  1. ALENDRONIC ACID (ALENDRONIC ACID) [Suspect]
     Indication: OSTEOPOROSIS
  2. ALENDRONIC ACID (ALENDRONIC ACID) [Suspect]
     Indication: MULTIPLE FRACTURES
  3. ESTRADERM (ESTRADIOL) [Concomitant]
  4. CALCIMAGON-D3 (LEKOVIT CA) [Concomitant]

REACTIONS (4)
  - Atypical femur fracture [None]
  - Pain [None]
  - Limb deformity [None]
  - Pain in extremity [None]
